FAERS Safety Report 17605061 (Version 1)
Quarter: 2020Q1

REPORT INFORMATION
  Report Type: Spontaneous
  Country: US (occurrence: US)
  Receive Date: 20200331
  Receipt Date: 20200331
  Transmission Date: 20200409
  Serious: Yes (Other)
  Sender: FDA-Public Use
  Company Number: None

PATIENT
  Sex: Male
  Weight: 54 kg

DRUGS (1)
  1. LIVALO [Suspect]
     Active Substance: PITAVASTATIN CALCIUM
     Dates: start: 20190324, end: 20200331

REACTIONS (5)
  - Groin pain [None]
  - Erythema [None]
  - Pain in extremity [None]
  - Tendon rupture [None]
  - Peripheral artery stenosis [None]
